FAERS Safety Report 6956442-3 (Version None)
Quarter: 2010Q3

REPORT INFORMATION
  Report Type: 
  Country: None (occurrence: None)
  Receive Date: 20100830
  Receipt Date: 20100825
  Transmission Date: 20110219
  Serious: Yes (Hospitalization)
  Sender: FDA-Public Use
  Company Number: Z0001504A

PATIENT
  Age: 51 Year
  Sex: Female
  Weight: 66.3 kg

DRUGS (4)
  1. LAPATINIB [Suspect]
     Dosage: 1250MG PER DAY
     Route: 048
     Dates: start: 20090724
  2. NAB-PACLITAXEL [Suspect]
     Dosage: 100MGM2 CYCLIC
     Route: 042
     Dates: start: 20090724
  3. PROTONIX [Concomitant]
     Indication: NAUSEA
     Dosage: 40MG PER DAY
     Route: 042
     Dates: start: 20090814, end: 20090816
  4. ZOFRAN [Concomitant]
     Indication: NAUSEA
     Dosage: 4MG FOUR TIMES PER DAY
     Route: 042
     Dates: start: 20090715, end: 20090816

REACTIONS (1)
  - DIARRHOEA [None]
